FAERS Safety Report 7259674-2 (Version None)
Quarter: 2011Q1

REPORT INFORMATION
  Report Type: 
  Country: None (occurrence: None)
  Receive Date: 20110130
  Receipt Date: 20100910
  Transmission Date: 20110831
  Serious: No
  Sender: FDA-Public Use
  Company Number: US-ABBOTT-10P-163-0653873-00

PATIENT
  Sex: Female
  Weight: 77.18 kg

DRUGS (8)
  1. UNKNOWN CREAMS [Concomitant]
     Indication: PSORIASIS
     Route: 061
  2. CYMBALTA [Concomitant]
     Indication: PRODUCT USED FOR UNKNOWN INDICATION
  3. HUMIRA [Suspect]
     Indication: PSORIASIS
     Route: 058
     Dates: start: 20100512
  4. SYNTHROID [Concomitant]
     Indication: THYROID DISORDER
  5. FOSAMAX [Concomitant]
     Indication: BONE DISORDER
  6. NEXIUM [Concomitant]
     Indication: DYSPEPSIA
  7. MIRAPEX [Concomitant]
     Indication: RESTLESS LEGS SYNDROME
  8. AMBIEN [Concomitant]
     Indication: SLEEP DISORDER THERAPY

REACTIONS (3)
  - INJECTION SITE PAIN [None]
  - INCORRECT DOSE ADMINISTERED [None]
  - WRONG TECHNIQUE IN DRUG USAGE PROCESS [None]
